FAERS Safety Report 10261631 (Version 1)
Quarter: 2014Q2

REPORT INFORMATION
  Report Type: Spontaneous
  Country: US (occurrence: US)
  Receive Date: 20140626
  Receipt Date: 20140626
  Transmission Date: 20141212
  Serious: Yes (Other)
  Sender: FDA-Public Use
  Company Number: US-PFIZER INC-2014171940

PATIENT
  Age: 61 Year
  Sex: Female
  Weight: 102.4 kg

DRUGS (1)
  1. DILANTIN-125 [Suspect]
     Indication: GENERALISED TONIC-CLONIC SEIZURE
     Dosage: UNK

REACTIONS (5)
  - Overdose [Unknown]
  - Transient ischaemic attack [Unknown]
  - Anticonvulsant drug level increased [Unknown]
  - Disorientation [Unknown]
  - Malaise [Unknown]
